FAERS Safety Report 14998236 (Version 1)
Quarter: 2018Q2

REPORT INFORMATION
  Report Type: Spontaneous
  Country: US (occurrence: US)
  Receive Date: 20180519
  Receipt Date: 20180519
  Transmission Date: 20180711
  Serious: Yes (Hospitalization)
  Sender: FDA-Public Use
  Company Number: None

PATIENT
  Age: 18 Year
  Sex: Male
  Weight: 83.8 kg

DRUGS (4)
  1. METHOTREXATE. [Suspect]
     Active Substance: METHOTREXATE
     Dates: end: 20180501
  2. MERCAPTOPURINE. [Suspect]
     Active Substance: MERCAPTOPURINE
     Dates: end: 20180507
  3. PREDNISONE. [Suspect]
     Active Substance: PREDNISONE
     Dates: end: 20180407
  4. VINCRISTINE SULFATE. [Suspect]
     Active Substance: VINCRISTINE SULFATE
     Dates: end: 20180403

REACTIONS (4)
  - Hepatic function abnormal [None]
  - Ocular icterus [None]
  - Jaundice [None]
  - Vomiting [None]

NARRATIVE: CASE EVENT DATE: 20180509
